FAERS Safety Report 9050989 (Version 2)
Quarter: 2013Q1

REPORT INFORMATION
  Report Type: Spontaneous
  Country: US (occurrence: US)
  Receive Date: 20130205
  Receipt Date: 20130313
  Transmission Date: 20140127
  Serious: Yes (Death, Congenital Anomaly, Other)
  Sender: FDA-Public Use
  Company Number: US-PFIZER INC-2013043841

PATIENT
  Sex: Female

DRUGS (10)
  1. ZOLOFT [Suspect]
     Indication: DEPRESSION
     Dosage: UNK
     Route: 064
     Dates: start: 200709, end: 200807
  2. SERTRALINE HCL [Suspect]
     Dosage: UNK
     Route: 064
     Dates: start: 200709, end: 200807
  3. CLONAZEPAM [Concomitant]
     Dosage: UNK
     Route: 064
  4. CLOMIPRAMINE [Concomitant]
     Dosage: UNK
     Route: 064
  5. CEPHALEXIN [Concomitant]
     Dosage: UNK
     Route: 064
  6. HYDROCODONE [Concomitant]
     Dosage: UNK
     Route: 064
  7. NITROFURANTOIN-MACRO [Concomitant]
     Dosage: UNK
     Route: 064
  8. PROCHLORPERAZINE [Concomitant]
     Dosage: UNK
     Route: 064
  9. OXYCODONE [Concomitant]
     Dosage: UNK
     Route: 064
  10. NATAL CARE VITAMINS [Concomitant]
     Dosage: UNK
     Route: 064

REACTIONS (6)
  - Maternal exposure timing unspecified [Fatal]
  - Transposition of the great vessels [Fatal]
  - Heterotaxia [Fatal]
  - Intestinal malrotation [Fatal]
  - Hypoplastic left heart syndrome [Fatal]
  - Premature baby [Unknown]
